FAERS Safety Report 15065714 (Version 2)
Quarter: 2018Q3

REPORT INFORMATION
  Report Type: Spontaneous
  Country: US (occurrence: US)
  Receive Date: 20180626
  Receipt Date: 20180725
  Transmission Date: 20181010
  Serious: No
  Sender: FDA-Public Use
  Company Number: US-PFIZER INC-2018257048

PATIENT
  Age: 56 Year
  Sex: Female

DRUGS (1)
  1. XELJANZ [Suspect]
     Active Substance: TOFACITINIB CITRATE
     Indication: RHEUMATOID ARTHRITIS
     Dosage: 5 MG, 2X/DAY
     Route: 048
     Dates: start: 20180425

REACTIONS (9)
  - Weight increased [Unknown]
  - Inflammation [Unknown]
  - Herpes zoster [Recovered/Resolved]
  - Dermatitis acneiform [Unknown]
  - Headache [Unknown]
  - Impatience [Unknown]
  - Mood altered [Unknown]
  - Acne [Unknown]
  - Mood swings [Unknown]

NARRATIVE: CASE EVENT DATE: 201806
